FAERS Safety Report 5203414-5 (Version None)
Quarter: 2007Q1

REPORT INFORMATION
  Report Type: 
  Country: None (occurrence: None)
  Receive Date: 20070110
  Receipt Date: 20061229
  Transmission Date: 20070707
  Serious: Yes (Hospitalization)
  Sender: FDA-Public Use
  Company Number: US-AMGEN-US203327

PATIENT
  Sex: Male
  Weight: 87.2 kg

DRUGS (7)
  1. ENBREL [Suspect]
     Indication: PSORIATIC ARTHROPATHY
     Route: 058
     Dates: start: 20021201, end: 20061122
  2. ENBREL [Suspect]
     Indication: PSORIASIS
  3. FLEXERIL [Concomitant]
     Dates: start: 20061117, end: 20061119
  4. NAPROXEN [Concomitant]
     Dates: start: 20061117, end: 20061119
  5. AVAPRO [Concomitant]
     Dates: start: 20030101
  6. NORVASC [Concomitant]
     Dates: start: 20030101
  7. LIPITOR [Concomitant]
     Dates: start: 20030101

REACTIONS (3)
  - CONVULSION [None]
  - PARTIAL SEIZURES [None]
  - TRANSIENT ISCHAEMIC ATTACK [None]
